FAERS Safety Report 5301547-6 (Version None)
Quarter: 2007Q2

REPORT INFORMATION
  Report Type: 
  Country: None (occurrence: None)
  Receive Date: 20070412
  Receipt Date: 20070329
  Transmission Date: 20071010
  Serious: Yes (Hospitalization)
  Sender: FDA-Public Use
  Company Number: 2007-00330FE

PATIENT
  Age: 32 Year
  Sex: Female

DRUGS (1)
  1. MENOPUR [Suspect]
     Indication: ASSISTED FERTILISATION
     Dosage: 75 IU SC
     Route: 058
     Dates: start: 20070326, end: 20070326

REACTIONS (2)
  - ATRIAL FLUTTER [None]
  - EXTRASYSTOLES [None]
